FAERS Safety Report 24926763 (Version 2)
Quarter: 2025Q2

REPORT INFORMATION
  Report Type: Spontaneous
  Country: AU (occurrence: AU)
  Receive Date: 20250205
  Receipt Date: 20250407
  Transmission Date: 20250717
  Serious: Yes (Hospitalization, Other)
  Sender: CSL BEHRING
  Company Number: AU-BEH-2025191532

PATIENT
  Age: 62 Year
  Sex: Male
  Weight: 81.7 kg

DRUGS (7)
  1. HUMAN IMMUNOGLOBULIN G [Suspect]
     Active Substance: HUMAN IMMUNOGLOBULIN G
     Indication: Hypogammaglobulinaemia
     Route: 042
  2. ASCORBIC ACID [Concomitant]
     Active Substance: ASCORBIC ACID
  3. PERINDOPRIL [Concomitant]
     Active Substance: PERINDOPRIL
  4. ASPIRIN [Concomitant]
     Active Substance: ASPIRIN
  5. PANTOPRAZOLE [Concomitant]
     Active Substance: PANTOPRAZOLE
  6. PREGABALIN [Concomitant]
     Active Substance: PREGABALIN
  7. ROSUVASTATIN [Concomitant]
     Active Substance: ROSUVASTATIN

REACTIONS (17)
  - Abdominal sepsis [Recovering/Resolving]
  - Anaphylactic reaction [Recovered/Resolved]
  - Colitis ischaemic [Recovering/Resolving]
  - Abdominal pain [Recovering/Resolving]
  - Hypotension [Recovering/Resolving]
  - Hypoaesthesia [Recovering/Resolving]
  - Chills [Recovering/Resolving]
  - Pyrexia [Recovering/Resolving]
  - Dizziness [Recovering/Resolving]
  - Constipation [Recovering/Resolving]
  - Feeling hot [Recovering/Resolving]
  - Dizziness postural [Recovering/Resolving]
  - Blood creatinine increased [Recovering/Resolving]
  - Dizziness [Recovered/Resolved]
  - Hypotension [Recovered/Resolved]
  - Vertigo [Recovered/Resolved]
  - Abdominal pain [Recovered/Resolved]
